FAERS Safety Report 8500867-1 (Version None)
Quarter: 2012Q3

REPORT INFORMATION
  Report Type: 
  Country: None (occurrence: None)
  Receive Date: 20120710
  Receipt Date: 20120703
  Transmission Date: 20120928
  Serious: No
  Sender: FDA-Public Use
  Company Number: US-ASTRAZENECA-2012SE45703

PATIENT
  Age: 42 Year
  Sex: Female

DRUGS (1)
  1. RHINOCORT [Suspect]
     Indication: SINUSITIS
     Route: 045

REACTIONS (2)
  - HEADACHE [None]
  - DRUG DOSE OMISSION [None]
